FAERS Safety Report 7113500-0 (Version None)
Quarter: 2010Q4

REPORT INFORMATION
  Report Type: 
  Country: None (occurrence: None)
  Receive Date: 20101119
  Receipt Date: 20101111
  Transmission Date: 20110411
  Serious: No
  Sender: FDA-Public Use
  Company Number: US-PFIZER INC-2010148001

PATIENT
  Sex: Female
  Weight: 63.502 kg

DRUGS (2)
  1. PRISTIQ [Suspect]
     Indication: DEPRESSION
     Route: 048
     Dates: end: 20101101
  2. ADALAT [Concomitant]
     Indication: HYPERTENSION

REACTIONS (14)
  - ANGER [None]
  - BALANCE DISORDER [None]
  - CONFUSIONAL STATE [None]
  - DIARRHOEA [None]
  - DIZZINESS [None]
  - DRUG INEFFECTIVE [None]
  - DYSPNOEA [None]
  - EMOTIONAL DISORDER [None]
  - FEELING OF DESPAIR [None]
  - INSOMNIA [None]
  - NIGHTMARE [None]
  - PALPITATIONS [None]
  - STRESS [None]
  - TEARFULNESS [None]
